FAERS Safety Report 5590712-9 (Version None)
Quarter: 2008Q1

REPORT INFORMATION
  Report Type: 
  Country: None (occurrence: None)
  Receive Date: 20080114
  Receipt Date: 20080108
  Transmission Date: 20080703
  Serious: Yes (Other)
  Sender: FDA-Public Use
  Company Number: US-PFIZER INC-2007062324

PATIENT
  Sex: Male
  Weight: 104.3 kg

DRUGS (4)
  1. VIAGRA [Suspect]
     Indication: SEXUAL DYSFUNCTION
     Route: 048
  2. DIOVAN HCT [Concomitant]
  3. LIPITOR [Concomitant]
  4. ASPIRIN [Concomitant]

REACTIONS (4)
  - BLINDNESS [None]
  - ISCHAEMIC STROKE [None]
  - OPTIC ISCHAEMIC NEUROPATHY [None]
  - VISUAL FIELD DEFECT [None]
